FAERS Safety Report 8610013 (Version 2)
Quarter: 2013Q3

REPORT INFORMATION
  Report Type: Spontaneous
  Country: US (occurrence: US)
  Receive Date: 20120612
  Receipt Date: 20130923
  Transmission Date: 20140515
  Serious: Yes (Hospitalization)
  Sender: FDA-Public Use
  Company Number: PHEH2012US011531

PATIENT
  Sex: Female

DRUGS (3)
  1. SANDOSTATIN LAR [Suspect]
     Indication: ACROMEGALY
     Dosage: UNK UKN, QMO
  2. SANDOSTATIN LAR [Suspect]
     Dosage: UNK, EVERY 28 DAYS
  3. ALENDRONATE SODIUM [Concomitant]

REACTIONS (3)
  - Femur fracture [Unknown]
  - Fall [Unknown]
  - Gait disturbance [Unknown]
